FAERS Safety Report 14303107 (Version 2)
Quarter: 2018Q1

REPORT INFORMATION
  Report Type: Spontaneous
  Country: GB (occurrence: GB)
  Receive Date: 20171219
  Receipt Date: 20180216
  Transmission Date: 20180509
  Serious: Yes (Other)
  Sender: FDA-Public Use
  Company Number: GB-DRREDDYS-GER/UKI/17/0095153

PATIENT
  Age: 49 Year
  Sex: Female

DRUGS (5)
  1. GEMCITABINE [Suspect]
     Active Substance: GEMCITABINE\GEMCITABINE HYDROCHLORIDE
     Indication: GESTATIONAL TROPHOBLASTIC TUMOUR
     Route: 065
  2. TAXOL [Suspect]
     Active Substance: PACLITAXEL
     Indication: GESTATIONAL TROPHOBLASTIC TUMOUR
     Dosage: NOT REPORTED,FREQ:NOT REPORTED
     Route: 065
  3. CISPLATIN. [Interacting]
     Active Substance: CISPLATIN
     Indication: GESTATIONAL TROPHOBLASTIC TUMOUR
     Dosage: FREQ:NOT REPORTED
     Route: 065
  4. ETOPOSIDE. [Interacting]
     Active Substance: ETOPOSIDE
     Indication: GESTATIONAL TROPHOBLASTIC TUMOUR
     Dosage: NOT REPORTED, FREQ:NOT REPORTED
     Route: 065
  5. CARBOPLATIN. [Interacting]
     Active Substance: CARBOPLATIN
     Indication: GESTATIONAL TROPHOBLASTIC TUMOUR
     Dosage: NOT REPORTED, FREQ: NOT REPORTED
     Route: 065

REACTIONS (2)
  - Posterior reversible encephalopathy syndrome [Recovered/Resolved]
  - Drug interaction [Recovered/Resolved]
